FAERS Safety Report 9301135 (Version 1)
Quarter: 2013Q2

REPORT INFORMATION
  Report Type: Spontaneous
  Country: US (occurrence: US)
  Receive Date: 20130521
  Receipt Date: 20130521
  Transmission Date: 20140414
  Serious: No
  Sender: FDA-Public Use
  Company Number: US-PFIZER INC-2013154448

PATIENT
  Age: 5 Decade
  Sex: Female
  Weight: 54.42 kg

DRUGS (2)
  1. LYRICA [Suspect]
     Indication: FIBROMYALGIA
     Dosage: DAILY
  2. SYNTHROID [Concomitant]
     Indication: THYROID DISORDER
     Dosage: UNK, 1X/DAY

REACTIONS (1)
  - Hypoaesthesia [Unknown]
